FAERS Safety Report 10625005 (Version 3)
Quarter: 2015Q1

REPORT INFORMATION
  Report Type: Report from Study
  Country: US (occurrence: US)
  Receive Date: 20141204
  Receipt Date: 20150228
  Transmission Date: 20150720
  Serious: Yes (Hospitalization)
  Sender: FDA-Public Use
  Company Number: US-BIOGENIDEC-2014BI122458

PATIENT
  Age: 35 Year
  Sex: Female
  Weight: 90 kg

DRUGS (13)
  1. GILENYA [Concomitant]
     Active Substance: FINGOLIMOD HYDROCHLORIDE
     Indication: MULTIPLE SCLEROSIS
     Route: 048
     Dates: start: 20131125, end: 201402
  2. BACLOFEN. [Concomitant]
     Active Substance: BACLOFEN
     Indication: MUSCLE SPASMS
     Route: 048
  3. AMPHETAMINE [Concomitant]
     Active Substance: AMPHETAMINE
  4. TECFIDERA [Suspect]
     Active Substance: DIMETHYL FUMARATE
     Indication: MULTIPLE SCLEROSIS
     Dates: end: 201410
  5. PERCOCET [Concomitant]
     Active Substance: ACETAMINOPHEN\OXYCODONE HYDROCHLORIDE
  6. VALIUM [Concomitant]
     Active Substance: DIAZEPAM
  7. ABILIFY [Concomitant]
     Active Substance: ARIPIPRAZOLE
     Indication: DEPRESSION
     Route: 048
  8. AMPYRA [Concomitant]
     Active Substance: DALFAMPRIDINE
     Indication: GAIT DISTURBANCE
     Dates: start: 201111, end: 201410
  9. DILAUDID [Concomitant]
     Active Substance: HYDROMORPHONE HYDROCHLORIDE
  10. XANAX [Concomitant]
     Active Substance: ALPRAZOLAM
  11. AMBIEN [Concomitant]
     Active Substance: ZOLPIDEM TARTRATE
  12. CYMBALTA [Concomitant]
     Active Substance: DULOXETINE HYDROCHLORIDE
     Indication: DEPRESSION
  13. TECFIDERA [Suspect]
     Active Substance: DIMETHYL FUMARATE
     Indication: MULTIPLE SCLEROSIS
     Route: 048
     Dates: start: 201407, end: 201408

REACTIONS (3)
  - Abasia [Not Recovered/Not Resolved]
  - Cellulitis gangrenous [Recovered/Resolved]
  - Dysstasia [Not Recovered/Not Resolved]

NARRATIVE: CASE EVENT DATE: 201408
